FAERS Safety Report 6692600-3 (Version None)
Quarter: 2010Q2

REPORT INFORMATION
  Report Type: 
  Country: None (occurrence: None)
  Receive Date: 20100422
  Receipt Date: 20100414
  Transmission Date: 20101027
  Serious: Yes (Death, Hospitalization)
  Sender: FDA-Public Use
  Company Number: BR-PFIZER INC-2008099610

PATIENT
  Age: 54 Year
  Sex: Female
  Weight: 54 kg

DRUGS (15)
  1. IRINOTECAN HCL [Suspect]
     Indication: COLORECTAL CANCER
     Dosage: 285 MG, SINGLE EVERY TWO WEEKS
     Route: 042
     Dates: start: 20080918
  2. *FLUOROURACIL [Suspect]
     Indication: COLORECTAL CANCER
     Dosage: 636 MG, EVERY TWO WEEKS
     Route: 040
     Dates: start: 20080918
  3. *FLUOROURACIL [Suspect]
     Dosage: 3815 MG, INFUSION, EVERY 2 WEEKS
     Route: 042
     Dates: start: 20080918
  4. SUNITINIB MALATE [Suspect]
     Indication: COLORECTAL CANCER
     Dosage: 37.5 MG, 1X/DAY
     Route: 048
     Dates: start: 20080918
  5. *CALCIUM FOLINATE [Suspect]
     Indication: COLORECTAL CANCER
     Dosage: 318 MG, SINGLE EVERY TWO WEEKS
     Route: 042
     Dates: start: 20080918
  6. CAPTOPRIL [Concomitant]
     Route: 048
     Dates: start: 20050101
  7. ACETAMINOPHEN [Concomitant]
     Dosage: UNK
     Route: 048
     Dates: start: 20081001, end: 20081123
  8. DEXAMETHASONE [Concomitant]
     Dosage: UNK
     Route: 042
     Dates: start: 20080918, end: 20081112
  9. BUSCOPAN [Concomitant]
     Dosage: UNK
     Route: 042
     Dates: start: 20080918, end: 20081123
  10. ATROPINE [Concomitant]
     Dosage: UNK
     Route: 042
     Dates: start: 20080918, end: 20081112
  11. CODEINE [Concomitant]
     Dosage: UNK
     Route: 048
     Dates: start: 20080101, end: 20081123
  12. DIAZEPAM [Concomitant]
     Dosage: UNK
     Route: 048
     Dates: start: 20080720, end: 20081123
  13. KYTRIL [Concomitant]
     Dosage: UNK
     Route: 042
     Dates: start: 20080918, end: 20081112
  14. FLUOXETINE [Concomitant]
     Dosage: UNK
     Route: 048
     Dates: start: 20080720
  15. HYDROCHLOROTHIAZIDE [Concomitant]
     Dosage: UNK
     Route: 048
     Dates: start: 20050101

REACTIONS (2)
  - DIARRHOEA [None]
  - SEPSIS [None]
